FAERS Safety Report 21672094 (Version 1)
Quarter: 2022Q4

REPORT INFORMATION
  Report Type: Report from Study
  Country: FR (occurrence: FR)
  Receive Date: 20221202
  Receipt Date: 20221202
  Transmission Date: 20230113
  Serious: Yes (Death, Other)
  Sender: FDA-Public Use
  Company Number: FR-JNJFOC-20221157344

PATIENT
  Age: 93 Year
  Sex: Female

DRUGS (2)
  1. BORTEZOMIB [Suspect]
     Active Substance: BORTEZOMIB
     Indication: Plasma cell myeloma
     Dosage: 1.3 MILLIGRAM, 1/WEEK
     Route: 065
     Dates: end: 20200805
  2. DEXAMETHASONE [Suspect]
     Active Substance: DEXAMETHASONE
     Indication: Plasma cell myeloma
     Dosage: 50 MILLIGRAM, 1/WEEK
     Route: 065
     Dates: end: 20200805

REACTIONS (3)
  - Death [Fatal]
  - Squamous cell carcinoma [Unknown]
  - Drug ineffective [Unknown]
